FAERS Safety Report 6217086-4 (Version None)
Quarter: 2009Q2

REPORT INFORMATION
  Report Type: 
  Country: None (occurrence: None)
  Receive Date: 20090606
  Receipt Date: 20090526
  Transmission Date: 20091009
  Serious: Yes (Other)
  Sender: FDA-Public Use
  Company Number: FR-PFIZER INC-2009190965

PATIENT
  Age: 48 Year

DRUGS (2)
  1. LYRICA [Suspect]
     Indication: NEURALGIA
     Dosage: 25 MG, 3X/DAY
     Dates: start: 20090214
  2. LYRICA [Suspect]
     Indication: SCIATICA

REACTIONS (2)
  - HYPERSENSITIVITY [None]
  - PHLEBITIS [None]
